FAERS Safety Report 16311973 (Version 2)
Quarter: 2019Q3

REPORT INFORMATION
  Report Type: Spontaneous
  Country: FR (occurrence: FR)
  Receive Date: 20190515
  Receipt Date: 20190710
  Transmission Date: 20191004
  Serious: Yes (Hospitalization, Other)
  Sender: FDA-Public Use
  Company Number: FR-BRISTOL-MYERS SQUIBB COMPANY-BMS-2019-044494

PATIENT
  Age: 66 Year
  Sex: Female
  Weight: 90 kg

DRUGS (9)
  1. METFORMIN HYDROCHLORIDE. [Suspect]
     Active Substance: METFORMIN HYDROCHLORIDE
     Indication: TYPE 2 DIABETES MELLITUS
     Dosage: 3000 MILLIGRAM, QD
     Route: 048
     Dates: end: 20190220
  2. VELMETIA [Suspect]
     Active Substance: METFORMIN\SITAGLIPTIN
     Indication: TYPE 2 DIABETES MELLITUS
     Dosage: 2 DOSAGE FORM, QD
     Route: 048
     Dates: end: 20190220
  3. AUGMENTIN [Concomitant]
     Active Substance: AMOXICILLIN\CLAVULANATE POTASSIUM
     Indication: INFLUENZA LIKE ILLNESS
     Dosage: UNK
     Route: 065
     Dates: start: 20190219
  4. KARDEGIC [Concomitant]
     Active Substance: ASPIRIN DL-LYSINE
     Indication: PRODUCT USED FOR UNKNOWN INDICATION
     Dosage: 75 MILLIGRAM, QD
     Route: 048
  5. LERCAN [Concomitant]
     Active Substance: LERCANIDIPINE
     Indication: PRODUCT USED FOR UNKNOWN INDICATION
     Dosage: 10 MILLIGRAM, QD
     Route: 048
  6. BIPRETERAX [INDAPAMIDE;PERINDOPRIL ARGININE] [Suspect]
     Active Substance: INDAPAMIDE\PERINDOPRIL ARGININE
     Indication: HYPERTENSION
     Dosage: 1 DOSAGE FORM, QD
     Route: 048
  7. GLICLAZIDE [Concomitant]
     Active Substance: GLICLAZIDE
     Indication: PRODUCT USED FOR UNKNOWN INDICATION
     Dosage: 60 MILLIGRAM, Q8H
     Route: 048
  8. NEBIVOLOL. [Concomitant]
     Active Substance: NEBIVOLOL
     Indication: PRODUCT USED FOR UNKNOWN INDICATION
     Dosage: 5 MILLIGRAM, QD
     Route: 048
  9. TAHOR [Concomitant]
     Active Substance: ATORVASTATIN CALCIUM
     Indication: PRODUCT USED FOR UNKNOWN INDICATION
     Dosage: 10 MILLIGRAM, QD
     Route: 048

REACTIONS (2)
  - Lactic acidosis [Recovered/Resolved]
  - Acute kidney injury [Recovered/Resolved]

NARRATIVE: CASE EVENT DATE: 20190220
